FAERS Safety Report 5927309-4 (Version None)
Quarter: 2008Q4

REPORT INFORMATION
  Report Type: 
  Country: None (occurrence: None)
  Receive Date: 20081022
  Receipt Date: 20081013
  Transmission Date: 20090506
  Serious: Yes (Other)
  Sender: FDA-Public Use
  Company Number: FR-ALLERGAN-0812945US

PATIENT
  Sex: Female

DRUGS (2)
  1. DYSPORT [Suspect]
     Indication: MUSCLE SPASTICITY
     Dosage: 1500 UNITS, SINGLE
     Route: 030
  2. DYSPORT [Suspect]
     Dosage: 1500 UNITS, SINGLE
     Route: 030

REACTIONS (3)
  - DIPLOPIA [None]
  - MUSCLE TWITCHING [None]
  - MUSCULAR WEAKNESS [None]
